FAERS Safety Report 5653515-2 (Version None)
Quarter: 2008Q1

REPORT INFORMATION
  Report Type: 
  Country: None (occurrence: None)
  Receive Date: 20080306
  Receipt Date: 20080304
  Transmission Date: 20080703
  Serious: Yes (Hospitalization)
  Sender: FDA-Public Use
  Company Number: FR-WYE-G01189308

PATIENT
  Sex: Female

DRUGS (1)
  1. TAZOCILLINE [Suspect]
     Indication: INFECTION PROPHYLAXIS
     Dosage: UNKNOWN
     Route: 042
     Dates: start: 20071030, end: 20071031

REACTIONS (3)
  - ERYTHEMA [None]
  - PAIN [None]
  - RASH MACULO-PAPULAR [None]
